FAERS Safety Report 9242188 (Version 1)
Quarter: 2013Q2

REPORT INFORMATION
  Report Type: Spontaneous
  Country: US (occurrence: US)
  Receive Date: 20130419
  Receipt Date: 20130419
  Transmission Date: 20140414
  Serious: Yes (Other)
  Sender: FDA-Public Use
  Company Number: US-TEVA-399262USA

PATIENT
  Age: 33 Year
  Sex: Female

DRUGS (2)
  1. PROPRANOLOL [Suspect]
     Indication: GESTATIONAL HYPERTENSION
  2. COPAXONE [Concomitant]
     Indication: MULTIPLE SCLEROSIS
     Dates: start: 20120810

REACTIONS (5)
  - Pulmonary arterial pressure increased [Unknown]
  - Palpitations [Unknown]
  - Arrhythmia [Unknown]
  - Heart valve incompetence [Unknown]
  - Blood pressure increased [Unknown]
